FAERS Safety Report 7497700-6 (Version None)
Quarter: 2011Q2

REPORT INFORMATION
  Report Type: 
  Country: None (occurrence: None)
  Receive Date: 20110523
  Receipt Date: 20110516
  Transmission Date: 20111010
  Serious: Yes (Hospitalization)
  Sender: FDA-Public Use
  Company Number: US-US-EMD SERONO, INC.-7060104

PATIENT
  Sex: Female

DRUGS (2)
  1. REBIF [Suspect]
     Indication: MULTIPLE SCLEROSIS
     Route: 058
     Dates: start: 20110502
  2. HIPREX [Concomitant]
     Indication: PROPHYLAXIS URINARY TRACT INFECTION

REACTIONS (3)
  - URINARY TRACT INFECTION [None]
  - MUSCULAR WEAKNESS [None]
  - DYSARTHRIA [None]
